FAERS Safety Report 17585904 (Version 1)
Quarter: 2020Q1

REPORT INFORMATION
  Report Type: Spontaneous
  Country: FR (occurrence: FR)
  Receive Date: 20200326
  Receipt Date: 20200326
  Transmission Date: 20200409
  Serious: Yes (Hospitalization)
  Sender: FDA-Public Use
  Company Number: FR-MYLANLABS-2020M1031979

PATIENT
  Age: 78 Year
  Sex: Female
  Weight: 69 kg

DRUGS (10)
  1. SPIRONOLACTONE. [Suspect]
     Active Substance: SPIRONOLACTONE
     Indication: CARDIAC FAILURE
     Dosage: 25 MILLIGRAM, QD
     Route: 048
     Dates: start: 201808, end: 20190506
  2. FUROSEMIDE. [Suspect]
     Active Substance: FUROSEMIDE
     Indication: CARDIAC FAILURE
     Dosage: 60 MILLIGRAM, QD
     Route: 048
     Dates: start: 201808, end: 20190506
  3. PANTOPRAZOLE [Concomitant]
     Active Substance: PANTOPRAZOLE
     Dosage: UNK
  4. XARELTO [Suspect]
     Active Substance: RIVAROXABAN
     Indication: ATRIAL FIBRILLATION
     Dosage: 1 DOSAGE FORM, QD
     Route: 048
     Dates: start: 201707, end: 20190506
  5. ALLOPURINOL. [Concomitant]
     Active Substance: ALLOPURINOL
     Dosage: UNK
  6. DIFFU K [Concomitant]
     Active Substance: POTASSIUM CHLORIDE
     Dosage: UNK
  7. BISOPROLOL [Concomitant]
     Active Substance: BISOPROLOL
     Dosage: UNK
  8. LEVOTHYROX [Concomitant]
     Active Substance: LEVOTHYROXINE
     Dosage: UNK
  9. IMOVANE [Concomitant]
     Active Substance: ZOPICLONE
     Dosage: UNK
  10. FUMAFER [Concomitant]
     Active Substance: FERROUS FUMARATE
     Dosage: UNK

REACTIONS (2)
  - Epistaxis [Recovered/Resolved]
  - Acute kidney injury [Recovered/Resolved]

NARRATIVE: CASE EVENT DATE: 20190506
